FAERS Safety Report 20429952 (Version 1)
Quarter: 2022Q1

REPORT INFORMATION
  Report Type: Report from Study
  Country: FR (occurrence: FR)
  Receive Date: 20220204
  Receipt Date: 20220204
  Transmission Date: 20220424
  Serious: Yes (Life-Threatening, Other)
  Sender: FDA-Public Use
  Company Number: FR-SERVIER-S19004147

PATIENT

DRUGS (8)
  1. ONCASPAR [Suspect]
     Active Substance: PEGASPARGASE
     Indication: Acute lymphocytic leukaemia
     Dosage: 2700 IU, D12, D26
     Route: 042
     Dates: start: 20181203, end: 20181218
  2. VINCRISTINE [Suspect]
     Active Substance: VINCRISTINE
     Indication: Acute lymphocytic leukaemia
     Dosage: 1.6 MG, D2, D8, D15, D22
     Route: 042
     Dates: start: 20181128, end: 20181213
  3. METHYLPREDNISOLONE [Concomitant]
     Active Substance: METHYLPREDNISOLONE
     Indication: Acute lymphocytic leukaemia
     Dosage: 66 MG, D1 TO  D28
     Route: 048
     Dates: start: 20181129, end: 20181220
  4. TN UNSPECIFIED [Concomitant]
     Indication: Acute lymphocytic leukaemia
     Dosage: 560 MG, DAY 7, DAY 8
     Route: 042
     Dates: start: 20181128, end: 20181129
  5. TN UNSPECIFIED [Concomitant]
     Indication: Acute lymphocytic leukaemia
     Dosage: 44 MG, D8, D15, D22, D29
     Route: 042
     Dates: start: 20181204, end: 20181220
  6. TN UNSPECIFIED [Concomitant]
     Indication: Acute lymphocytic leukaemia
     Dosage: 12 MG, D13, D24
     Route: 037
     Dates: start: 20181204, end: 20181218
  7. TN UNSPECIFIED [Concomitant]
     Indication: Acute lymphocytic leukaemia
     Dosage: 30 MG, D13, D 24
     Route: 037
     Dates: start: 20181204, end: 20181218
  8. TN UNSPECIFIED [Concomitant]
     Indication: Acute lymphocytic leukaemia
     Dosage: 15 MG, D13, D 24
     Route: 037
     Dates: start: 20181204, end: 20181218

REACTIONS (2)
  - Hypofibrinogenaemia [Recovered/Resolved]
  - Pneumonia staphylococcal [Recovered/Resolved]

NARRATIVE: CASE EVENT DATE: 20181212
